FAERS Safety Report 8311943 (Version 2)
Quarter: 2013Q2

REPORT INFORMATION
  Report Type: Report from Study
  Country: IT (occurrence: IT)
  Receive Date: 20111227
  Receipt Date: 20130510
  Transmission Date: 20140414
  Serious: Yes (Other)
  Sender: FDA-Public Use
  Company Number: IT-ROCHE-1024355

PATIENT
  Age: 33 Year
  Sex: Female
  Weight: 59 kg

DRUGS (2)
  1. TOCILIZUMAB [Suspect]
     Indication: RHEUMATOID ARTHRITIS
     Dosage: MOST RECENT DOSE ON 27/OCT/2011
     Route: 042
     Dates: start: 20110127
  2. CELECOXIB [Concomitant]
     Dosage: AS NEEDED
     Route: 048
     Dates: start: 200810

REACTIONS (1)
  - Rectal haemorrhage [Recovered/Resolved]
